FAERS Safety Report 8493857-9 (Version None)
Quarter: 2012Q3

REPORT INFORMATION
  Report Type: 
  Country: None (occurrence: None)
  Receive Date: 20120706
  Receipt Date: 20120702
  Transmission Date: 20120928
  Serious: Yes (Other)
  Sender: FDA-Public Use
  Company Number: PHHY2012HU034167

PATIENT
  Age: 30 Year
  Sex: Female

DRUGS (6)
  1. CYCLOSPORINE [Suspect]
     Indication: PROTEINURIA
     Dosage: 4 MG/KG, BODY WEIGHT DAILY
     Dates: end: 20010301
  2. AZATHIOPRINE [Concomitant]
     Dosage: 2 MG/KG, BODY WEIGHT
  3. CYCLOSPORINE [Suspect]
     Dates: start: 20040301
  4. CYCLOPHOSPHAMIDE [Concomitant]
     Dosage: 4 MG/KG, BODY WEIGHT DAILY
  5. STEROIDS [Concomitant]
     Dosage: 1 MG/KG, BODY WEIGHT
     Route: 048
     Dates: start: 20040101
  6. CYCLOPHOSPHAMIDE [Concomitant]
     Dosage: 6 MG/KG, BODY WEIGHT/DAY

REACTIONS (17)
  - NAIL-PATELLA SYNDROME [None]
  - NEPHROPATHY TOXIC [None]
  - JOINT DISLOCATION [None]
  - HAEMATURIA [None]
  - ASTHENIA [None]
  - BLOOD PRESSURE INCREASED [None]
  - MALAISE [None]
  - DYSPLASIA [None]
  - PROTEINURIA [None]
  - GLOMERULAR FILTRATION RATE DECREASED [None]
  - RENAL IMPAIRMENT [None]
  - HYPERCHOLESTEROLAEMIA [None]
  - IRON DEFICIENCY ANAEMIA [None]
  - TOXICITY TO VARIOUS AGENTS [None]
  - BLOOD CREATININE INCREASED [None]
  - RESPIRATORY TRACT INFECTION [None]
  - OEDEMA [None]
